FAERS Safety Report 9927389 (Version 1)
Quarter: 2014Q1

REPORT INFORMATION
  Report Type: Spontaneous
  Country: FR (occurrence: FR)
  Receive Date: 20140226
  Receipt Date: 20140226
  Transmission Date: 20141002
  Serious: Yes (Hospitalization)
  Sender: FDA-Public Use
  Company Number: FR-B.I. PHARMACEUTICALS,INC./RIDGEFIELD-2014-BI-08040FF

PATIENT
  Age: 77 Year
  Sex: Female

DRUGS (8)
  1. PRADAXA [Suspect]
     Indication: ATRIAL FIBRILLATION
     Dosage: 220 MG
     Route: 048
  2. AMIODARONE [Concomitant]
     Route: 065
  3. RAMIPRIL [Concomitant]
     Route: 065
  4. BISOPROLOL [Concomitant]
     Route: 065
  5. DIAMICRON [Concomitant]
     Route: 065
  6. DIFFU-K [Concomitant]
     Route: 065
  7. FUROSEMIDE [Concomitant]
     Route: 065
  8. TEMESTA [Concomitant]
     Route: 065

REACTIONS (4)
  - Acute pulmonary oedema [Not Recovered/Not Resolved]
  - Prothrombin time [Not Recovered/Not Resolved]
  - International normalised ratio [Not Recovered/Not Resolved]
  - Activated partial thromboplastin time [Unknown]
